FAERS Safety Report 10545035 (Version 1)
Quarter: 2014Q4

REPORT INFORMATION
  Report Type: Spontaneous
  Country: CZ (occurrence: CZ)
  Receive Date: 20141027
  Receipt Date: 20141027
  Transmission Date: 20150529
  Serious: Yes (Other)
  Sender: FDA-Public Use
  Company Number: CZ-PFIZER INC-2014293181

PATIENT
  Age: 64 Year
  Sex: Female

DRUGS (1)
  1. AXITINIB [Suspect]
     Active Substance: AXITINIB
     Indication: METASTATIC RENAL CELL CARCINOMA
     Dosage: 5 MG, 2X/DAY

REACTIONS (6)
  - Eye infection [Unknown]
  - Disease progression [Unknown]
  - Pneumonia [Unknown]
  - Hypertension [Unknown]
  - Chlamydial infection [Unknown]
  - Metastatic renal cell carcinoma [Unknown]
